FAERS Safety Report 21841580 (Version 1)
Quarter: 2023Q1

REPORT INFORMATION
  Report Type: Report from Study
  Country: US (occurrence: US)
  Receive Date: 20230110
  Receipt Date: 20230110
  Transmission Date: 20230418
  Serious: No
  Sender: FDA-Public Use
  Company Number: US-ABBVIE-4228782

PATIENT
  Age: 49 Year
  Sex: Male

DRUGS (1)
  1. RINVOQ [Suspect]
     Active Substance: UPADACITINIB
     Indication: Colitis ulcerative
     Route: 048

REACTIONS (3)
  - Bronchitis [Recovering/Resolving]
  - Diarrhoea [Recovering/Resolving]
  - Defaecation urgency [Unknown]

NARRATIVE: CASE EVENT DATE: 20221101
